FAERS Safety Report 16184792 (Version 1)
Quarter: 2019Q2

REPORT INFORMATION
  Report Type: Spontaneous
  Country: CH (occurrence: CH)
  Receive Date: 20190411
  Receipt Date: 20190411
  Transmission Date: 20190711
  Serious: Yes (Other)
  Sender: FDA-Public Use
  Company Number: CH-PFIZER INC-2019148859

PATIENT
  Age: 60 Year
  Sex: Male
  Weight: 114 kg

DRUGS (1)
  1. DILZEM RETARD [Suspect]
     Active Substance: DILTIAZEM
     Dosage: 1 DF, DAILY
     Dates: start: 20040501, end: 20180915

REACTIONS (6)
  - Skin disorder [Unknown]
  - Oedema [Unknown]
  - Micturition disorder [Unknown]
  - Blood glucose increased [Unknown]
  - Atrial fibrillation [Unknown]
  - Pruritus [Unknown]

NARRATIVE: CASE EVENT DATE: 20040615
